FAERS Safety Report 9804088 (Version 2)
Quarter: 2014Q1

REPORT INFORMATION
  Report Type: Spontaneous
  Country: US (occurrence: None)
  Receive Date: 20140103
  Receipt Date: 20140204
  Transmission Date: 20141002
  Serious: Yes (Other)
  Sender: FDA-Public Use
  Company Number: 2013-US-004917

PATIENT
  Age: 63 Year
  Sex: Female
  Weight: 74.8 kg

DRUGS (10)
  1. XYREM [Suspect]
     Indication: NARCOLEPSY
     Route: 048
     Dates: start: 201203, end: 2013
  2. XYREM [Suspect]
     Indication: SOMNOLENCE
     Route: 048
     Dates: start: 201203, end: 2013
  3. CYMBALTA [Concomitant]
  4. ARMOUR THYROID [Concomitant]
  5. VITAMIN B COMPLEX [Concomitant]
  6. CEREFOLIN NAC [Concomitant]
  7. FML FORTE [Concomitant]
  8. VITAMIN C [Concomitant]
  9. CALCIUM [Concomitant]
  10. VITAMIN D [Concomitant]

REACTIONS (1)
  - Sleep apnoea syndrome [None]
